FAERS Safety Report 9845908 (Version 1)
Quarter: 2014Q1

REPORT INFORMATION
  Report Type: Report from Study
  Country: BR (occurrence: BR)
  Receive Date: 20140127
  Receipt Date: 20140127
  Transmission Date: 20141002
  Serious: Yes (Hospitalization, Other)
  Sender: FDA-Public Use
  Company Number: PHHY2014BR008407

PATIENT
  Age: 81 Year
  Sex: Male
  Weight: 73 kg

DRUGS (3)
  1. DIOVAN [Suspect]
     Indication: HYPERTENSION
     Dosage: 0.5 DF, UNK
  2. DUO-TRAVATAN [Suspect]
     Indication: GLAUCOMA
     Dosage: 1 DRP, UNK (APPLIED ON EYE AT NIGHT)
  3. LOSARTAN POTASSIUM [Concomitant]
     Indication: BLOOD PRESSURE ABNORMAL
     Dosage: 50 MG, UNK
     Dates: start: 201308

REACTIONS (8)
  - Thrombosis [Recovered/Resolved]
  - Urinary tract infection [Recovered/Resolved]
  - Local swelling [Recovered/Resolved]
  - Blood pressure increased [Recovered/Resolved]
  - Nervous system disorder [Recovered/Resolved]
  - Hypoaesthesia [Recovered/Resolved]
  - Tension [Recovered/Resolved]
  - Wrong technique in drug usage process [Unknown]
